FAERS Safety Report 8890691 (Version 2)
Quarter: 2013Q3

REPORT INFORMATION
  Report Type: Report from Study
  Country: JP (occurrence: JP)
  Receive Date: 20121107
  Receipt Date: 20130826
  Transmission Date: 20140515
  Serious: Yes (Hospitalization)
  Sender: FDA-Public Use
  Company Number: JP-VERTEX PHARMACEUTICAL INC.-AE-2012-008842

PATIENT
  Age: 57 Year
  Sex: Male

DRUGS (18)
  1. VX-950 (TELAPREVIR) [Suspect]
     Indication: CHRONIC HEPATITIS C
     Dosage: 1500 MG, QD
     Route: 048
     Dates: start: 20120606, end: 20120607
  2. REBETOL [Suspect]
     Indication: CHRONIC HEPATITIS C
     Dosage: 400 MG, QD
     Route: 048
     Dates: start: 20120606, end: 20120608
  3. REBETOL [Suspect]
     Dosage: 400 MG, QD
     Route: 048
     Dates: start: 20120613, end: 20120621
  4. REBETOL [Suspect]
     Dosage: 400 MG, QD
     Route: 048
     Dates: end: 20120803
  5. REBETOL [Suspect]
     Dosage: 400 MG, QD
     Route: 048
     Dates: start: 20120817, end: 20120824
  6. REBETOL [Suspect]
     Dosage: 400 MG, UNK
     Route: 048
     Dates: start: 20120907, end: 20120914
  7. REBETOL [Suspect]
     Dosage: 400 MG, QD
     Route: 048
     Dates: start: 20120921, end: 20121005
  8. REBETOL [Suspect]
     Dosage: 400 MG, QD
     Route: 048
     Dates: start: 20121019
  9. PEGINTERFERON ALFA-2B [Suspect]
     Indication: CHRONIC HEPATITIS C
     Dosage: 0.82 ?G/KG, QW
     Route: 058
     Dates: start: 20120606, end: 20120620
  10. PEGINTERFERON ALFA-2B [Suspect]
     Dosage: 0.82 ?G/KG, QW
     Route: 058
     Dates: start: 20120727, end: 20120803
  11. PEGINTERFERON ALFA-2B [Suspect]
     Dosage: 0.82 ?G/KG, QW
     Route: 058
     Dates: start: 20120817, end: 20120824
  12. PEGINTERFERON ALFA-2B [Suspect]
     Dosage: 0.82 ?G/KG, QW
     Route: 058
     Dates: start: 20120907, end: 20120914
  13. PEGINTERFERON ALFA-2B [Suspect]
     Dosage: 0.82 ?G/KG, QW
     Route: 058
     Dates: start: 20120921, end: 20121005
  14. PEGINTERFERON ALFA-2B [Suspect]
     Dosage: 0.82 ?G/KG, QW
     Route: 058
     Dates: start: 20121019, end: 20121026
  15. NAUZELIN [Concomitant]
     Dosage: UNK, PRN
     Route: 048
  16. LYRICA [Concomitant]
     Dosage: 2 DF, QD
     Route: 048
  17. TAKEPRON [Concomitant]
     Dosage: 1 DF, QD
     Route: 048
  18. ROHYPNOL [Concomitant]
     Route: 048

REACTIONS (1)
  - Rash [Recovered/Resolved]
